FAERS Safety Report 5685379-5 (Version None)
Quarter: 2008Q1

REPORT INFORMATION
  Report Type: 
  Country: None (occurrence: None)
  Receive Date: 20080328
  Receipt Date: 20080320
  Transmission Date: 20080703
  Serious: Yes (Other)
  Sender: FDA-Public Use
  Company Number: US-PFIZER INC-2008025666

PATIENT
  Sex: Female

DRUGS (9)
  1. CELEBREX [Suspect]
  2. MORPHINE [Suspect]
  3. HUMIRA [Suspect]
     Indication: PSORIATIC ARTHROPATHY
     Dosage: DAILY DOSE:40MG
     Route: 058
  4. METHOTREXATE [Concomitant]
     Indication: PSORIATIC ARTHROPATHY
     Route: 048
  5. LISINOPRIL [Concomitant]
     Indication: HYPERTENSION
     Route: 048
  6. METOPROLOL SUCCINATE [Concomitant]
     Indication: HYPERTENSION
     Route: 048
  7. GABAPENTIN [Concomitant]
     Route: 048
  8. PERCOCET [Concomitant]
     Route: 048
  9. LEUCOVORIN CALCIUM [Concomitant]
     Route: 048

REACTIONS (4)
  - ACCIDENTAL EXPOSURE [None]
  - HALLUCINATION [None]
  - HYPERSENSITIVITY [None]
  - URTICARIA [None]
